FAERS Safety Report 12824239 (Version 4)
Quarter: 2018Q1

REPORT INFORMATION
  Report Type: Spontaneous
  Country: US (occurrence: US)
  Receive Date: 20161007
  Receipt Date: 20180307
  Transmission Date: 20180508
  Serious: No
  Sender: FDA-Public Use
  Company Number: US-PFIZER INC-2016465997

PATIENT
  Age: 62 Year
  Sex: Female
  Weight: 74.83 kg

DRUGS (13)
  1. BUSPAR [Concomitant]
     Active Substance: BUSPIRONE HYDROCHLORIDE
     Dosage: UNK
  2. CORTISONE [Concomitant]
     Active Substance: CORTISONE\HYDROCORTISONE
     Indication: ARTHRALGIA
     Dosage: UNK UNK, EVERY 3 MONTHS (EVERY THREE MONTHS ON RIGHT KNEE AND 1-2 TIMES A YEAR ON LEFT KNEE)
  3. ESTRACE [Concomitant]
     Active Substance: ESTRADIOL
     Dosage: UNK
  4. TYLENOL WITH CODEINE [Concomitant]
     Active Substance: ACETAMINOPHEN\CODEINE PHOSPHATE
     Indication: PAIN
     Dosage: UNK
  5. LIDODERM [Concomitant]
     Active Substance: LIDOCAINE
     Dosage: UNK
  6. ZOLOFT [Concomitant]
     Active Substance: SERTRALINE HYDROCHLORIDE
     Dosage: UNK
  7. RESTORIL [Concomitant]
     Active Substance: TEMAZEPAM
     Dosage: UNK
  8. GABAPENTIN. [Concomitant]
     Active Substance: GABAPENTIN
     Indication: PAIN
     Dosage: 400 MG, AS NEEDED (BY MOUTH AT BED TIME)
     Route: 048
     Dates: start: 2012
  9. ZOCOR [Concomitant]
     Active Substance: SIMVASTATIN
     Dosage: UNK
  10. PEPCID [Concomitant]
     Active Substance: FAMOTIDINE
     Dosage: UNK
  11. GABAPENTIN. [Concomitant]
     Active Substance: GABAPENTIN
     Indication: BACK PAIN
  12. LYRICA [Suspect]
     Active Substance: PREGABALIN
     Indication: PAIN
     Dosage: 75 MG, DAILY (1 CAPSULE)
     Route: 048
     Dates: start: 20161021, end: 201712
  13. PROMETRIUM [Concomitant]
     Active Substance: PROGESTERONE
     Dosage: UNK

REACTIONS (2)
  - Fall [Unknown]
  - Nerve injury [Unknown]
